FAERS Safety Report 8094084-X (Version None)
Quarter: 2012Q1

REPORT INFORMATION
  Report Type: 
  Country: None (occurrence: None)
  Receive Date: 20120131
  Receipt Date: 20120119
  Transmission Date: 20120608
  Serious: Yes (Hospitalization, Other)
  Sender: FDA-Public Use
  Company Number: JP-ASTELLAS-2012US001075

PATIENT
  Sex: Male
  Weight: 64 kg

DRUGS (10)
  1. ERLOTINIB HYDROCHLORIDE [Suspect]
     Dosage: 100 MG, UID/QD
     Route: 048
     Dates: start: 20111114
  2. GEMCITABINE HYDROCHLORIDE [Concomitant]
     Dosage: 1000 MG/M2, WEEKLY
     Route: 041
     Dates: start: 20111114
  3. GEMCITABINE HYDROCHLORIDE [Concomitant]
     Indication: ADENOCARCINOMA PANCREAS
     Dosage: 1000 MG/M2, WEEKLY
     Route: 041
     Dates: start: 20111003, end: 20111011
  4. LANSOPRAZOLE [Concomitant]
     Indication: PRODUCT USED FOR UNKNOWN INDICATION
     Dosage: 15 MG, UID/QD
     Route: 048
  5. NAPROXEN [Concomitant]
     Indication: PRODUCT USED FOR UNKNOWN INDICATION
     Dosage: 300 MG, UID/QD
     Route: 048
     Dates: start: 20111017
  6. OXYCONTIN [Concomitant]
     Indication: PRODUCT USED FOR UNKNOWN INDICATION
     Dosage: 10 MG, UID/QD
     Route: 048
     Dates: end: 20111016
  7. ERLOTINIB HYDROCHLORIDE [Suspect]
     Indication: PANCREATIC CARCINOMA STAGE IV
     Dosage: 100 MG, UID/QD
     Route: 048
     Dates: start: 20111003, end: 20111024
  8. MAGNESIUM SULFATE [Concomitant]
     Indication: PRODUCT USED FOR UNKNOWN INDICATION
     Dosage: 990 MG, UID/QD
     Route: 048
  9. CELECOXIB [Concomitant]
     Indication: PRODUCT USED FOR UNKNOWN INDICATION
     Dosage: 200 MG, UID/QD
     Route: 048
     Dates: end: 20111019
  10. OXYCONTIN [Concomitant]
     Dosage: 20 MG, UID/QD
     Route: 048
     Dates: start: 20111017

REACTIONS (3)
  - DERMATITIS ACNEIFORM [None]
  - DEEP VEIN THROMBOSIS [None]
  - EMBOLISM [None]
